FAERS Safety Report 7818902-2 (Version None)
Quarter: 2011Q4

REPORT INFORMATION
  Report Type: 
  Country: None (occurrence: None)
  Receive Date: 20111017
  Receipt Date: 20111017
  Transmission Date: 20120403
  Serious: Yes (Hospitalization)
  Sender: FDA-Public Use
  Company Number: None

PATIENT
  Sex: Female
  Weight: 54 kg

DRUGS (1)
  1. BEVACIZUMAB (RHUMAB VEGF) [Suspect]
     Dosage: 2460 MG

REACTIONS (2)
  - ABDOMINAL PAIN [None]
  - GASTROINTESTINAL PERFORATION [None]
